FAERS Safety Report 14917692 (Version 1)
Quarter: 2018Q2

REPORT INFORMATION
  Report Type: Spontaneous
  Country: JP (occurrence: JP)
  Receive Date: 20180521
  Receipt Date: 20180521
  Transmission Date: 20180711
  Serious: Yes (Hospitalization, Other)
  Sender: FDA-Public Use
  Company Number: JP-ASTRAZENECA-2018SE65903

PATIENT
  Sex: Female

DRUGS (6)
  1. PULMICORT TURBUHALER [Suspect]
     Active Substance: BUDESONIDE
     Indication: ASTHMA
     Route: 055
     Dates: start: 201609
  2. PULMICORT TURBUHALER [Suspect]
     Active Substance: BUDESONIDE
     Indication: ASTHMA
     Route: 055
     Dates: start: 20180512
  3. CALCIUM [Concomitant]
     Active Substance: CALCIUM
     Dosage: DOSE UNKNOWN
     Route: 065
  4. MAGNESIUM OXIDE. [Concomitant]
     Active Substance: MAGNESIUM OXIDE
     Dosage: DOSE UNKNOWN
     Route: 065
  5. SYMBICORT [Suspect]
     Active Substance: BUDESONIDE\FORMOTEROL FUMARATE DIHYDRATE
     Indication: ASTHMA
     Dosage: DOSE UNKNOWN
     Route: 055
  6. NEXIUM [Concomitant]
     Active Substance: ESOMEPRAZOLE MAGNESIUM
     Dosage: DOSE UNKNOWN
     Route: 048

REACTIONS (12)
  - Malaise [Unknown]
  - Abdominal discomfort [Unknown]
  - Upper limb fracture [Unknown]
  - Spinal compression fracture [Unknown]
  - Laryngeal discomfort [Unknown]
  - Back pain [Unknown]
  - Spinal pain [Unknown]
  - Feeling abnormal [Unknown]
  - Dysphonia [Unknown]
  - Dysphonia [Unknown]
  - Asthenia [Unknown]
  - Wheezing [Unknown]

NARRATIVE: CASE EVENT DATE: 201611
